FAERS Safety Report 5297942-4 (Version None)
Quarter: 2007Q2

REPORT INFORMATION
  Report Type: 
  Country: None (occurrence: None)
  Receive Date: 20070416
  Receipt Date: 20070404
  Transmission Date: 20071010
  Serious: Yes (Death, Life-Threatening, Hospitalization)
  Sender: FDA-Public Use
  Company Number: FR-GLAXOSMITHKLINE-B0465255A

PATIENT
  Age: 95 Year
  Sex: Female

DRUGS (15)
  1. ALLOPURINOL [Suspect]
     Route: 048
  2. AVANDIA [Suspect]
     Route: 048
  3. ALDACTONE [Suspect]
     Route: 048
  4. COLCHIMAX [Suspect]
     Route: 048
  5. LASIX [Suspect]
     Route: 048
  6. FOZITEC [Suspect]
     Route: 048
  7. ADANCOR [Concomitant]
     Route: 065
  8. KARDEGIC [Concomitant]
     Route: 065
  9. CARDENSIEL [Concomitant]
     Route: 065
  10. PARIET [Concomitant]
     Route: 065
  11. STABLON [Concomitant]
     Route: 065
  12. ALPRAZOLAM [Concomitant]
     Route: 065
  13. ZOLPIDEM [Concomitant]
     Route: 065
  14. ALUMINUM HYDROXIDE AND MAGNESIUM TRISILICATE [Concomitant]
     Route: 065
  15. ARESTAL [Concomitant]
     Route: 065

REACTIONS (8)
  - ACIDOSIS [None]
  - ACUTE PULMONARY OEDEMA [None]
  - CARDIAC FAILURE [None]
  - HYPERKALAEMIA [None]
  - OEDEMA PERIPHERAL [None]
  - OFF LABEL USE [None]
  - RENAL FAILURE ACUTE [None]
  - RIGHT VENTRICULAR FAILURE [None]
